FAERS Safety Report 16980337 (Version 1)
Quarter: 2019Q4

REPORT INFORMATION
  Report Type: Spontaneous
  Country: US (occurrence: US)
  Receive Date: 20191031
  Receipt Date: 20191031
  Transmission Date: 20200122
  Serious: Yes (Other)
  Sender: FDA-Public Use
  Company Number: US-AMERICAN REGENT INC-2019002305

PATIENT
  Age: 12 Month
  Sex: Female
  Weight: 9.5 kg

DRUGS (9)
  1. CALCIUM GLUCONATE INJECTION, USP (3900-25) [Suspect]
     Active Substance: CALCIUM GLUCONATE
     Indication: BLOOD CALCIUM DECREASED
     Dosage: 1 GRAM
     Route: 042
  2. CALCIUM GLUCONATE INJECTION, USP (3900-25) [Suspect]
     Active Substance: CALCIUM GLUCONATE
     Indication: CARDIAC ARREST
     Dosage: UNK
     Route: 065
  3. EPINEPHRINE INJECTION, USP (0517-1071-01) [Suspect]
     Active Substance: EPINEPHRINE
     Indication: TORSADE DE POINTES
  4. CALCIUM [Concomitant]
     Active Substance: CALCIUM
     Indication: BLOOD CALCIUM DECREASED
     Route: 061
  5. CALCIUM GLUCONATE INJECTION, USP (3900-25) [Suspect]
     Active Substance: CALCIUM GLUCONATE
     Indication: TORSADE DE POINTES
  6. MAGNESIUM SULFATE INJECTION, USP (2602-25) [Suspect]
     Active Substance: MAGNESIUM SULFATE
     Indication: CARDIAC ARREST
     Route: 065
  7. EPINEPHRINE INJECTION, USP (0517-1071-01) [Suspect]
     Active Substance: EPINEPHRINE
     Indication: CARDIAC ARREST
     Dosage: UNK
     Route: 065
  8. MAGNESIUM SULFATE INJECTION, USP (2602-25) [Suspect]
     Active Substance: MAGNESIUM SULFATE
     Indication: TORSADE DE POINTES
  9. CALCIUM CARBONATE. [Concomitant]
     Active Substance: CALCIUM CARBONATE
     Indication: BLOOD CALCIUM DECREASED
     Route: 048

REACTIONS (3)
  - Torsade de pointes [Not Recovered/Not Resolved]
  - Drug ineffective for unapproved indication [Not Recovered/Not Resolved]
  - Cardiac arrest [Not Recovered/Not Resolved]
